FAERS Safety Report 24205188 (Version 1)
Quarter: 2024Q3

REPORT INFORMATION
  Report Type: Spontaneous
  Country: CN (occurrence: CN)
  Receive Date: 20240813
  Receipt Date: 20240813
  Transmission Date: 20241017
  Serious: Yes (Hospitalization, Other)
  Sender: EPIC PHARM
  Company Number: CN-EPICPHARMA-CN-2024EPCLIT00944

PATIENT
  Age: 53 Year
  Sex: Female

DRUGS (8)
  1. CAPREOMYCIN SULFATE [Suspect]
     Active Substance: CAPREOMYCIN SULFATE
     Indication: Pulmonary tuberculosis
     Route: 030
     Dates: start: 20170116, end: 20180101
  2. ISONIAZID [Suspect]
     Active Substance: ISONIAZID
     Indication: Pulmonary tuberculosis
     Route: 065
     Dates: start: 20170116, end: 20180101
  3. MOXIFLOXACIN HYDROCHLORIDE [Suspect]
     Active Substance: MOXIFLOXACIN HYDROCHLORIDE\MOXIFLOXACIN HYDROCHLORIDE MONOHYDRATE
     Indication: Pulmonary tuberculosis
     Route: 065
     Dates: start: 20170116, end: 20180101
  4. ETHAMBUTOL [Concomitant]
     Active Substance: ETHAMBUTOL HYDROCHLORIDE
     Indication: Pulmonary tuberculosis
     Route: 065
     Dates: start: 20170116, end: 20180101
  5. PYRAZINAMIDE [Concomitant]
     Active Substance: PYRAZINAMIDE
     Indication: Pulmonary tuberculosis
     Route: 065
     Dates: start: 20170116, end: 20180101
  6. SILIBININ [Concomitant]
     Active Substance: SILIBININ
     Indication: Product used for unknown indication
     Route: 065
     Dates: end: 20180101
  7. BICYCLOL [Concomitant]
     Active Substance: BICYCLOL
     Indication: Product used for unknown indication
     Route: 065
     Dates: end: 20180101
  8. ACETYLCYSTEINE [Concomitant]
     Active Substance: ACETYLCYSTEINE
     Indication: Product used for unknown indication
     Route: 065
     Dates: end: 20180101

REACTIONS (4)
  - Rhabdomyolysis [Recovered/Resolved]
  - Renal tubular injury [Recovered/Resolved]
  - Electrolyte imbalance [Recovered/Resolved]
  - Product use in unapproved indication [Unknown]
